FAERS Safety Report 8234273-4 (Version None)
Quarter: 2012Q1

REPORT INFORMATION
  Report Type: 
  Country: None (occurrence: None)
  Receive Date: 20120321
  Receipt Date: 20120313
  Transmission Date: 20120608
  Serious: Yes (Other)
  Sender: FDA-Public Use
  Company Number: 2012SP009315

PATIENT
  Age: 45 Year
  Sex: Female

DRUGS (2)
  1. SAPHRIS [Suspect]
     Indication: BIPOLAR DISORDER
     Dosage: 10 MG;BID;SL
     Route: 060
     Dates: start: 20120111, end: 20120215
  2. TRILEPTAL [Concomitant]

REACTIONS (3)
  - OEDEMA PERIPHERAL [None]
  - RASH MACULO-PAPULAR [None]
  - GLYCOSYLATED HAEMOGLOBIN INCREASED [None]
